FAERS Safety Report 17554417 (Version 6)
Quarter: 2020Q4

REPORT INFORMATION
  Report Type: Spontaneous
  Country: JP (occurrence: JP)
  Receive Date: 20200318
  Receipt Date: 20201119
  Transmission Date: 20210113
  Serious: Yes (Hospitalization, Other)
  Sender: FDA-Public Use
  Company Number: JP-ASTRAZENECA-2019SF33912

PATIENT
  Age: 15455 Day
  Sex: Female
  Weight: 43 kg

DRUGS (1)
  1. LYNPARZA [Suspect]
     Active Substance: OLAPARIB
     Indication: OVARIAN CANCER
     Route: 048
     Dates: start: 20190902, end: 20200122

REACTIONS (5)
  - Headache [Recovered/Resolved]
  - Pancytopenia [Recovering/Resolving]
  - Anaemia [Recovered/Resolved]
  - Interstitial lung disease [Recovered/Resolved]
  - Nausea [Recovering/Resolving]

NARRATIVE: CASE EVENT DATE: 20190905
